FAERS Safety Report 8477092 (Version 6)
Quarter: 2012Q4

REPORT INFORMATION
  Report Type: 
  Country: US (occurrence: US)
  Receive Date: 20120326
  Receipt Date: 20121107
  Transmission Date: 20130627
  Serious: Yes (Other)
  Sender: FDA-Public Use
  Company Number: US-PFIZER INC-2012072880

PATIENT
  Age: 55 Year
  Sex: Female
  Weight: 73.47 kg

DRUGS (12)
  1. NEURONTIN [Suspect]
     Indication: LEG PAIN
     Dosage: 300 mg, 3x/day
     Route: 048
     Dates: start: 2007, end: 20120918
  2. NEURONTIN [Suspect]
     Indication: BACK PAIN
  3. NEURONTIN [Suspect]
     Indication: NEUROPATHY
  4. PROTONIX [Suspect]
     Indication: ACID REFLUX (ESOPHAGEAL)
     Dosage: 40 mg, 1x/day
     Route: 048
  5. ELAVIL [Concomitant]
     Indication: BACK DISORDER
     Dosage: UNK, 1x/day
  6. ELAVIL [Concomitant]
     Dosage: 20 mg, daily
  7. SIMVASTATIN [Concomitant]
     Indication: HIGH CHOLESTEROL
     Dosage: UNK
  8. CATAPRES [Concomitant]
     Indication: BLOOD PRESSURE HIGH
     Dosage: 0.2 mg, 2x/day
  9. PROTONIX [Concomitant]
     Indication: ACID REFLUX (ESOPHAGEAL)
     Dosage: 40 mg, Daily
  10. NORVASC [Concomitant]
     Indication: BLOOD PRESSURE HIGH
     Dosage: 5 mg, daily
  11. NITROSTAT [Concomitant]
     Indication: CHEST PAIN
     Dosage: 0.4 mg, as needed
  12. FLEXERIL [Concomitant]
     Indication: MUSCLE SPASM
     Dosage: 10 mg, daily

REACTIONS (3)
  - Intervertebral disc protrusion [Not Recovered/Not Resolved]
  - Pain in extremity [Not Recovered/Not Resolved]
  - Paraesthesia [Not Recovered/Not Resolved]
